FAERS Safety Report 9378263 (Version 2)
Quarter: 2013Q3

REPORT INFORMATION
  Report Type: Spontaneous
  Country: US (occurrence: US)
  Receive Date: 20130701
  Receipt Date: 20130711
  Transmission Date: 20140515
  Serious: No
  Sender: FDA-Public Use
  Company Number: US-TEVA-416373USA

PATIENT
  Age: 33 Year
  Sex: Female
  Weight: 86.26 kg

DRUGS (1)
  1. PLAN B ONE-STEP [Suspect]
     Indication: POST COITAL CONTRACEPTION
     Dosage: 1.5 MILLIGRAM DAILY;
     Route: 048
     Dates: start: 20130530, end: 20130530

REACTIONS (7)
  - Affective disorder [Recovered/Resolved]
  - Hunger [Recovered/Resolved]
  - Feeling abnormal [Recovered/Resolved]
  - Pregnancy test positive [Recovered/Resolved]
  - Pregnancy test negative [Recovered/Resolved]
  - Nausea [Recovered/Resolved]
  - Menstruation delayed [Recovered/Resolved]
